FAERS Safety Report 26035484 (Version 2)
Quarter: 2025Q4

REPORT INFORMATION
  Report Type: Spontaneous
  Country: US (occurrence: US)
  Receive Date: 20251112
  Receipt Date: 20251118
  Transmission Date: 20260117
  Serious: Yes (Disabling, Other)
  Sender: BAYER HEALTHCARE LLC
  Company Number: US-BAYER-2025A149667

PATIENT
  Sex: Male

DRUGS (1)
  1. TINACTIN [Suspect]
     Active Substance: TOLNAFTATE

REACTIONS (7)
  - Mesothelioma [None]
  - Disability [None]
  - Physical disability [None]
  - Deformity [None]
  - Anxiety [None]
  - Discomfort [None]
  - Anhedonia [None]
